FAERS Safety Report 18057628 (Version 4)
Quarter: 2023Q1

REPORT INFORMATION
  Report Type: Spontaneous
  Country: HU (occurrence: HU)
  Receive Date: 20200722
  Receipt Date: 20230328
  Transmission Date: 20230417
  Serious: No
  Sender: FDA-Public Use
  Company Number: HU-009507513-2007HUN007392

PATIENT
  Age: 69 Year
  Sex: Male

DRUGS (2)
  1. KEYTRUDA [Suspect]
     Active Substance: PEMBROLIZUMAB
     Indication: Malignant melanoma
     Dosage: 400 MILLIGRAM, EVERY 6 WEEKS
     Dates: start: 20191213, end: 20200304
  2. VALSARTAN [Concomitant]
     Active Substance: VALSARTAN
     Dosage: ONCE DAILY

REACTIONS (1)
  - Acquired acrodermatitis enteropathica [Recovering/Resolving]

NARRATIVE: CASE EVENT DATE: 20200304
